FAERS Safety Report 9292357 (Version 1)
Quarter: 2013Q2

REPORT INFORMATION
  Report Type: Spontaneous
  Country: US (occurrence: None)
  Receive Date: 20130515
  Receipt Date: 20130515
  Transmission Date: 20140414
  Serious: Yes (Hospitalization)
  Sender: FDA-Public Use
  Company Number: None

PATIENT
  Age: 69 Year
  Sex: Female

DRUGS (1)
  1. FORTEO [Suspect]
     Indication: OSTEOPOROSIS
     Dosage: 20 MCG QD SQ
     Route: 058
     Dates: start: 20130418, end: 20130510

REACTIONS (4)
  - Dyspepsia [None]
  - Vasculitis [None]
  - Erythema [None]
  - Local swelling [None]
